FAERS Safety Report 20726747 (Version 2)
Quarter: 2023Q2

REPORT INFORMATION
  Report Type: Report from Study
  Country: US (occurrence: US)
  Receive Date: 20220419
  Receipt Date: 20230518
  Transmission Date: 20230722
  Serious: Yes (Other)
  Sender: FDA-Public Use
  Company Number: US-JAZZ-2021-US-020351

PATIENT
  Sex: Male

DRUGS (23)
  1. XYREM [Suspect]
     Active Substance: SODIUM OXYBATE
     Indication: Narcolepsy
     Dosage: 4.5 GRAM, BID
     Route: 048
     Dates: start: 200406, end: 200410
  2. XYREM [Suspect]
     Active Substance: SODIUM OXYBATE
     Indication: Cataplexy
     Dosage: 3 GRAM, BID
     Route: 048
     Dates: start: 200411, end: 200509
  3. XYREM [Suspect]
     Active Substance: SODIUM OXYBATE
     Indication: Somnolence
     Dosage: 2.25 GRAM, BID
     Route: 048
     Dates: start: 201604, end: 201604
  4. XYREM [Suspect]
     Active Substance: SODIUM OXYBATE
     Dosage: DOSE ADJUSTMENT
     Route: 048
     Dates: start: 201604, end: 201605
  5. XYREM [Suspect]
     Active Substance: SODIUM OXYBATE
     Dosage: 4.5 GRAM, BID
     Route: 048
     Dates: start: 201605
  6. MODAFINIL [Concomitant]
     Active Substance: MODAFINIL
     Indication: Product used for unknown indication
  7. OMEPRAZOLE [Concomitant]
     Active Substance: OMEPRAZOLE
     Indication: Product used for unknown indication
  8. IBUPROFEN [Concomitant]
     Active Substance: IBUPROFEN
     Indication: Product used for unknown indication
  9. FLONASE ALLERGY RELIEF [Concomitant]
     Active Substance: FLUTICASONE PROPIONATE
     Indication: Product used for unknown indication
  10. CRESTOR [Concomitant]
     Active Substance: ROSUVASTATIN CALCIUM
  11. TAMSULOSIN HYDROCHLORIDE [Concomitant]
     Active Substance: TAMSULOSIN HYDROCHLORIDE
  12. ARMODAFINIL [Concomitant]
     Active Substance: ARMODAFINIL
     Indication: Product used for unknown indication
     Dosage: TAKE 1 TABLET BY MOUTH DAILY
  13. ARMODAFINIL [Concomitant]
     Active Substance: ARMODAFINIL
     Dosage: TAKE 1 TABLET BY MOUTH DAILY
  14. DEXLANSOPRAZOLE [Concomitant]
     Active Substance: DEXLANSOPRAZOLE
     Indication: Product used for unknown indication
     Dosage: TAKE 600 MG BY MOUTH DAILY
  15. DEXLANSOPRAZOLE [Concomitant]
     Active Substance: DEXLANSOPRAZOLE
     Dosage: TAKE 600 MG BY MOUTH DAILY
  16. ALBUTEROL\IPRATROPIUM [Concomitant]
     Active Substance: ALBUTEROL\IPRATROPIUM
     Indication: Product used for unknown indication
     Dosage: INHALE 1 PUFF INTO LUNGS EVERY 6 HOURS
  17. ALBUTEROL\IPRATROPIUM [Concomitant]
     Active Substance: ALBUTEROL\IPRATROPIUM
     Dosage: INHALE 1 PUFF INTO LUNGS EVERY 6 HOURS
  18. ROSUVASTATIN [Concomitant]
     Active Substance: ROSUVASTATIN
     Indication: Product used for unknown indication
     Dosage: TAKE 1 TABLET BY MOUTH DAILY
  19. ROSUVASTATIN [Concomitant]
     Active Substance: ROSUVASTATIN
     Dosage: TAKE 1 TABLET BY MOUTH DAILY
  20. TAMSULOSIN [Concomitant]
     Active Substance: TAMSULOSIN
     Indication: Product used for unknown indication
     Dosage: TAKE 1 CAPSULE BY MOUTH DAILY
  21. TAMSULOSIN [Concomitant]
     Active Substance: TAMSULOSIN
     Dosage: TAKE 1 CAPSULE BY MOUTH DAILY
  22. VALSARTAN AND HYDROCHLOROTHIAZID [Concomitant]
     Indication: Product used for unknown indication
     Dosage: TAKE 1 TABLET BY MOUTH DAILY
  23. VALSARTAN AND HYDROCHLOROTHIAZID [Concomitant]
     Dosage: TAKE 1 TABLET BY MOUTH DAILY

REACTIONS (14)
  - Neuropathy peripheral [Unknown]
  - Epididymitis [Unknown]
  - Lymphadenopathy [Recovered/Resolved]
  - Obstructive sleep apnoea syndrome [Unknown]
  - Bronchitis [Unknown]
  - Dysphonia [Unknown]
  - Dysphagia [Recovered/Resolved]
  - Lumbosacral radiculopathy [Unknown]
  - Nicotine dependence [Unknown]
  - Gastrooesophageal reflux disease [Unknown]
  - Type V hyperlipidaemia [Unknown]
  - Snoring [Unknown]
  - Asthma [Unknown]
  - Hepatic steatosis [Unknown]
